FAERS Safety Report 25411845 (Version 1)
Quarter: 2025Q2

REPORT INFORMATION
  Report Type: Spontaneous
  Country: US (occurrence: US)
  Receive Date: 20250609
  Receipt Date: 20250609
  Transmission Date: 20250716
  Serious: No
  Sender: TAKEDA
  Company Number: US-TAKEDA-2025TUS051226

PATIENT
  Sex: Male

DRUGS (2)
  1. ADDERALL XR [Interacting]
     Active Substance: AMPHETAMINE ASPARTATE\AMPHETAMINE SULFATE\DEXTROAMPHETAMINE SACCHARATE\DEXTROAMPHETAMINE SULFATE
     Indication: Product used for unknown indication
  2. AUVELITY [Interacting]
     Active Substance: BUPROPION HYDROCHLORIDE\DEXTROMETHORPHAN HYDROBROMIDE
     Indication: Product used for unknown indication

REACTIONS (4)
  - Drug interaction [Unknown]
  - Attention deficit hyperactivity disorder [Unknown]
  - Disturbance in attention [Unknown]
  - Depression [Unknown]
